FAERS Safety Report 4712485-1 (Version None)
Quarter: 2005Q3

REPORT INFORMATION
  Report Type: 
  Country: None (occurrence: None)
  Receive Date: 20050711
  Receipt Date: 20050628
  Transmission Date: 20060218
  Serious: Yes (Other)
  Sender: FDA-Public Use
  Company Number: 2005080641

PATIENT
  Age: 67 Year
  Sex: Female
  Weight: 81.6475 kg

DRUGS (27)
  1. BEXTRA [Suspect]
     Indication: OSTEOARTHRITIS
     Dosage: 10 MG (10 MG, 1 IN 1 D), ORAL
     Route: 048
     Dates: start: 20030916
  2. LIPITOR [Suspect]
     Indication: BLOOD CHOLESTEROL INCREASED
     Dosage: (1 IN 1 D), ORAL
     Route: 048
     Dates: start: 20000101, end: 20040101
  3. LEXAPRO [Concomitant]
  4. PREMARIN [Concomitant]
  5. TRANXENE [Concomitant]
  6. DICYCLOMINE (DICYCLOVERINE) [Concomitant]
  7. DYAZIDE [Concomitant]
  8. COZAAR [Concomitant]
  9. ACCUPRIL [Concomitant]
  10. ALAVERT (LORATADINE) [Concomitant]
  11. CLARITIN [Concomitant]
  12. OMEPRAZOLE [Concomitant]
  13. NEXIUM [Concomitant]
  14. NASONEX [Concomitant]
  15. LOTEMAX [Concomitant]
  16. ALOMIDE (LODOXAMIDE) [Concomitant]
  17. MAXAIR [Concomitant]
  18. VITAMIN B6 (VITAMIN B6) [Concomitant]
  19. CALCIUM (CALCIUM) [Concomitant]
  20. VITAMIN E [Concomitant]
  21. GLUCOSAMINE W/CHONDROITIN SULFATES (ASCORBIC ACID, CHONDROITIN SULFATE [Concomitant]
  22. GLUCOSAMINE WITH MSM (GLUCOSAMINE, METHYLSULFONYLMETHANE) [Concomitant]
  23. ADVAIR (FLUTICASONE PROPIONATE, SALMETEROL XINAFOATE) [Concomitant]
  24. GLUCOSAMINE [Concomitant]
  25. FLOVENT [Concomitant]
  26. PLAVIX [Concomitant]
  27. LESCOL [Concomitant]

REACTIONS (14)
  - ARTHRITIS [None]
  - BLISTER [None]
  - BLOOD CHOLESTEROL INCREASED [None]
  - CEREBROVASCULAR ACCIDENT [None]
  - DRUG INTERACTION [None]
  - FURUNCLE [None]
  - HAEMORRHAGE [None]
  - INFECTED SKIN ULCER [None]
  - MYALGIA [None]
  - OSTEOARTHRITIS [None]
  - PAIN [None]
  - SOMNOLENCE [None]
  - TRANSIENT ISCHAEMIC ATTACK [None]
  - VISUAL DISTURBANCE [None]
